FAERS Safety Report 20917480 (Version 7)
Quarter: 2023Q2

REPORT INFORMATION
  Report Type: Report from Study
  Country: US (occurrence: US)
  Receive Date: 20220606
  Receipt Date: 20230427
  Transmission Date: 20230721
  Serious: Yes (Hospitalization, Other)
  Sender: FDA-Public Use
  Company Number: US-NOVARTISTESTPH-NVSC2022US128834

PATIENT
  Age: 71 Year
  Sex: Male
  Weight: 70.295 kg

DRUGS (1)
  1. TABRECTA [Suspect]
     Active Substance: CAPMATINIB
     Indication: Lung neoplasm malignant
     Dosage: 400 MG
     Route: 048
     Dates: start: 20220521

REACTIONS (10)
  - Protein total decreased [Unknown]
  - Blood sodium decreased [Recovered/Resolved]
  - Joint swelling [Unknown]
  - Peripheral swelling [Recovering/Resolving]
  - Confusional state [Unknown]
  - Anger [Unknown]
  - Somnolence [Unknown]
  - Fatigue [Unknown]
  - Blood potassium decreased [Recovered/Resolved]
  - Product dose omission issue [Unknown]

NARRATIVE: CASE EVENT DATE: 20220601
